FAERS Safety Report 4407485-5 (Version None)
Quarter: 2004Q3

REPORT INFORMATION
  Report Type: 
  Country: None (occurrence: None)
  Receive Date: 20040722
  Receipt Date: 20040705
  Transmission Date: 20050211
  Serious: Yes (Disabling)
  Sender: FDA-Public Use
  Company Number: 2004CG00016

PATIENT
  Age: 75 Year
  Sex: Female
  Weight: 57 kg

DRUGS (2)
  1. XYLOCAINE [Suspect]
     Indication: ANAESTHESIA
     Dosage: 70 MG RNB
     Dates: start: 20030708, end: 20030708
  2. BUPIVACAINE [Suspect]
     Indication: ANAESTHESIA
     Dosage: 17.5 MG RNB
     Dates: start: 20030708, end: 20030708

REACTIONS (9)
  - ANAESTHETIC COMPLICATION [None]
  - DIPLOPIA [None]
  - EXTRAOCULAR MUSCLE PARESIS [None]
  - MEDICATION ERROR [None]
  - MUSCLE DISORDER [None]
  - MYOSITIS [None]
  - NECROSIS [None]
  - NUCLEAR MAGNETIC RESONANCE IMAGING ABNORMAL [None]
  - OPHTHALMOPLEGIA [None]
